FAERS Safety Report 5122924-2 (Version None)
Quarter: 2006Q4

REPORT INFORMATION
  Report Type: 
  Country: None (occurrence: None)
  Receive Date: 20061005
  Receipt Date: 20061005
  Transmission Date: 20070319
  Serious: Yes (Hospitalization, Disabling, Other)
  Sender: FDA-Public Use
  Company Number: None

PATIENT
  Age: 44 Year
  Sex: Female
  Weight: 113.3993 kg

DRUGS (1)
  1. CYMBALTA [Suspect]
     Indication: BIPOLAR DISORDER
     Dosage: 30 TO 60 MG ONCE DAILY
     Dates: start: 20041101, end: 20051130

REACTIONS (4)
  - AFFECTIVE DISORDER [None]
  - EMOTIONAL DISORDER [None]
  - SUICIDAL IDEATION [None]
  - WEIGHT INCREASED [None]
